FAERS Safety Report 14572834 (Version 1)
Quarter: 2018Q1

REPORT INFORMATION
  Report Type: Spontaneous
  Country: IT (occurrence: IT)
  Receive Date: 20180226
  Receipt Date: 20180226
  Transmission Date: 20180509
  Serious: Yes (Other)
  Sender: FDA-Public Use
  Company Number: IT-TEVA-2018-IT-854421

PATIENT
  Age: 57 Year
  Sex: Male
  Weight: 85 kg

DRUGS (5)
  1. DOCETAXEL. [Suspect]
     Active Substance: DOCETAXEL
     Indication: LUNG ADENOCARCINOMA
     Route: 042
     Dates: start: 20161019
  2. LACOSAMIDE. [Concomitant]
     Active Substance: LACOSAMIDE
  3. FYCOMPA [Concomitant]
     Active Substance: PERAMPANEL
  4. SOLDESAM [Concomitant]
     Active Substance: DEXAMETHASONE
  5. NEXIUM [Concomitant]
     Active Substance: ESOMEPRAZOLE MAGNESIUM

REACTIONS (2)
  - Gait disturbance [Recovering/Resolving]
  - Dizziness [Recovering/Resolving]

NARRATIVE: CASE EVENT DATE: 20161112
